FAERS Safety Report 6719141-9 (Version None)
Quarter: 2010Q2

REPORT INFORMATION
  Report Type: 
  Country: None (occurrence: None)
  Receive Date: 20100510
  Receipt Date: 20100510
  Transmission Date: 20101027
  Serious: No
  Sender: FDA-Public Use
  Company Number: None

PATIENT
  Age: 36 Year
  Sex: Female
  Weight: 154.223 kg

DRUGS (2)
  1. HYDROCHLOROTHIAZIDE [Suspect]
     Indication: UTERINE LEIOMYOMA
     Dosage: 1 EVERYDAY
     Dates: start: 20090625, end: 20090709
  2. DOXYCYCLINE HYCLATE [Suspect]
     Indication: PELVIC INFLAMMATORY DISEASE
     Dosage: 100MG 1 TABLET TWICE A DAY TWICE A DAY FOR 2 WEEKS
     Dates: start: 20090625, end: 20090709

REACTIONS (2)
  - ALOPECIA [None]
  - SEBORRHOEIC DERMATITIS [None]
